FAERS Safety Report 7855978-0 (Version None)
Quarter: 2011Q4

REPORT INFORMATION
  Report Type: 
  Country: None (occurrence: None)
  Receive Date: 20111026
  Receipt Date: 20111019
  Transmission Date: 20120403
  Serious: Yes (Other)
  Sender: FDA-Public Use
  Company Number: US-AMGEN-USASP2011054386

PATIENT
  Age: 79 Year
  Sex: Male
  Weight: 101.59 kg

DRUGS (4)
  1. NPLATE [Suspect]
     Indication: HAEMORRHAGE
  2. NPLATE [Suspect]
     Indication: IDIOPATHIC THROMBOCYTOPENIC PURPURA
     Dosage: 200 MUG, UNK
     Dates: start: 20110520
  3. CORTICOSTEROIDS [Concomitant]
     Indication: IDIOPATHIC THROMBOCYTOPENIC PURPURA
  4. PROCRIT [Concomitant]
     Indication: ANAEMIA

REACTIONS (14)
  - CORONARY ARTERY BYPASS [None]
  - ANAEMIA [None]
  - NAUSEA [None]
  - FATIGUE [None]
  - ABDOMINAL PAIN [None]
  - CONTUSION [None]
  - PLEURAL EFFUSION [None]
  - HYPERCHOLESTEROLAEMIA [None]
  - OEDEMA PERIPHERAL [None]
  - HAEMOPTYSIS [None]
  - ASPIRATION PLEURAL CAVITY [None]
  - RENAL FAILURE CHRONIC [None]
  - HYPERTENSION [None]
  - CONJUNCTIVITIS [None]
